FAERS Safety Report 23611804 (Version 1)
Quarter: 2024Q1

REPORT INFORMATION
  Report Type: Report from Study
  Country: MY (occurrence: MY)
  Receive Date: 20240308
  Receipt Date: 20240308
  Transmission Date: 20240409
  Serious: Yes (Other)
  Sender: FDA-Public Use
  Company Number: MY-IPSEN Group, Research and Development-2024-03350

PATIENT
  Age: 64 Year
  Sex: Male

DRUGS (1)
  1. CABOMETYX [Suspect]
     Active Substance: CABOZANTINIB S-MALATE
     Indication: Hepatocellular carcinoma
     Dosage: THERAPY START DATE: FOUR MONTHS AGOTHERAPY STOP DATE: TWO WEEKS AGO , QD
     Route: 048

REACTIONS (11)
  - Hepatotoxicity [Recovering/Resolving]
  - Gait inability [Recovering/Resolving]
  - Quality of life decreased [Recovering/Resolving]
  - Hair colour changes [Recovering/Resolving]
  - Blister [Recovering/Resolving]
  - Depression [Recovering/Resolving]
  - Abdominal pain [Recovering/Resolving]
  - Nausea [Recovering/Resolving]
  - Decreased appetite [Recovering/Resolving]
  - Weight decreased [Recovering/Resolving]
  - Pain in extremity [Recovering/Resolving]
